FAERS Safety Report 13544199 (Version 2)
Quarter: 2017Q2

REPORT INFORMATION
  Report Type: Other
  Country: NL (occurrence: NL)
  Receive Date: 20170515
  Receipt Date: 20170517
  Transmission Date: 20170830
  Serious: Yes (Death, Hospitalization, Other)
  Sender: FDA-Public Use
  Company Number: NL-ASTELLAS-2017US018226

PATIENT
  Age: 75 Year
  Sex: Male
  Weight: 100 kg

DRUGS (10)
  1. LANTUS [Concomitant]
     Active Substance: INSULIN GLARGINE
     Indication: PRODUCT USED FOR UNKNOWN INDICATION
     Dosage: 100E/ML 1DD PATROON 3 ML, ONCE DAILY (ACCORDING TO AGREEMENT)
     Route: 058
  2. FENPROCOUMON [Concomitant]
     Active Substance: PHENPROCOUMON
     Indication: PRODUCT USED FOR UNKNOWN INDICATION
     Dosage: 3 MG, ONCE DAILY (ACCORDING TO THROMBOSIS SERVICE)
     Route: 048
  3. METFORMINE [Concomitant]
     Active Substance: METFORMIN HYDROCHLORIDE
     Indication: PRODUCT USED FOR UNKNOWN INDICATION
     Route: 048
  4. INSULIN ASPART [Concomitant]
     Active Substance: INSULIN ASPART
     Indication: PRODUCT USED FOR UNKNOWN INDICATION
     Dosage: 100 E/ML, THRICE DAILY (ACCORDING TO AGREEMENT)
     Route: 058
  5. SIMVASTATINE [Concomitant]
     Active Substance: SIMVASTATIN
     Indication: PRODUCT USED FOR UNKNOWN INDICATION
     Route: 048
  6. FERROFUMARAAT [Concomitant]
     Indication: PRODUCT USED FOR UNKNOWN INDICATION
     Route: 048
  7. GOSERELIN [Concomitant]
     Active Substance: GOSERELIN
     Indication: PRODUCT USED FOR UNKNOWN INDICATION
     Dosage: 10.8 MG, EVERY 3 MONTHS
     Route: 058
  8. OMEPRAZOL                          /00661201/ [Concomitant]
     Active Substance: OMEPRAZOLE
     Indication: PRODUCT USED FOR UNKNOWN INDICATION
     Route: 048
  9. DOXAZOSINE [Concomitant]
     Active Substance: DOXAZOSIN MESYLATE
     Indication: PRODUCT USED FOR UNKNOWN INDICATION
     Route: 048
  10. XTANDI [Suspect]
     Active Substance: ENZALUTAMIDE
     Indication: PROSTATE CANCER
     Route: 048
     Dates: start: 20170322, end: 20170427

REACTIONS (11)
  - Erythema [Fatal]
  - Speech disorder [Fatal]
  - Electrocardiogram QT prolonged [Fatal]
  - Ventricular fibrillation [Fatal]
  - Fatigue [Fatal]
  - Dyspnoea [Fatal]
  - Confusional state [Fatal]
  - General physical health deterioration [Fatal]
  - Epilepsy [Fatal]
  - Torsade de pointes [Fatal]
  - Aphasia [Fatal]

NARRATIVE: CASE EVENT DATE: 20170414
